FAERS Safety Report 12721054 (Version 1)
Quarter: 2016Q3

REPORT INFORMATION
  Report Type: Other
  Country: US (occurrence: US)
  Receive Date: 20160907
  Receipt Date: 20160907
  Transmission Date: 20161109
  Serious: No
  Sender: FDA-Public Use
  Company Number: US-COL_21106_2015

PATIENT
  Age: 85 Year
  Sex: Female

DRUGS (1)
  1. COLGATE TOTAL WHITENING [Suspect]
     Active Substance: SODIUM FLUORIDE\TRICLOSAN
     Indication: PRODUCT USED FOR UNKNOWN INDICATION
     Dosage: COVERED THE HEAD OF THE TOOTHBRUSH/ TWO OR THREE TIMES IN TOTAL/
     Route: 048
     Dates: start: 20151026, end: 2015

REACTIONS (4)
  - Tongue discolouration [Recovered/Resolved]
  - Product quality issue [Unknown]
  - Oral discomfort [Recovered/Resolved]
  - Tongue discomfort [Recovered/Resolved]

NARRATIVE: CASE EVENT DATE: 20151026
